FAERS Safety Report 10037417 (Version 3)
Quarter: 2014Q2

REPORT INFORMATION
  Report Type: Report from Study
  Country: US (occurrence: US)
  Receive Date: 20140326
  Receipt Date: 20140403
  Transmission Date: 20141212
  Serious: Yes (Hospitalization)
  Sender: FDA-Public Use
  Company Number: US-BAYER-2014-035089

PATIENT
  Age: 76 Year
  Sex: Female

DRUGS (1)
  1. RIOCIGUAT (GUANYLATE CYCLASE STIMULATOR) [Suspect]
     Indication: PULMONARY ARTERIAL HYPERTENSION
     Dosage: 1 MG, TID
     Route: 048
     Dates: start: 20140220

REACTIONS (6)
  - Fluid overload [None]
  - Rales [None]
  - Dyspnoea [None]
  - Oedema [None]
  - Nausea [None]
  - Pulmonary oedema [None]
